FAERS Safety Report 5135222-8 (Version None)
Quarter: 2006Q4

REPORT INFORMATION
  Report Type: 
  Country: None (occurrence: None)
  Receive Date: 20061026
  Receipt Date: 20061016
  Transmission Date: 20070319
  Serious: Yes (Hospitalization, Other)
  Sender: FDA-Public Use
  Company Number: DE-JNJFOC-20060804722

PATIENT
  Sex: Male
  Weight: 68 kg

DRUGS (2)
  1. HALOPERIDOL DECANOATE [Suspect]
     Indication: DRUG ADMINISTRATION ERROR
     Route: 042
  2. HALOPERIDOL DECANOATE [Concomitant]
     Indication: ACUTE PSYCHOSIS
     Route: 030

REACTIONS (2)
  - DRUG ADMINISTRATION ERROR [None]
  - OVERDOSE [None]
